FAERS Safety Report 8392817-6 (Version None)
Quarter: 2012Q2

REPORT INFORMATION
  Report Type: 
  Country: None (occurrence: None)
  Receive Date: 20120529
  Receipt Date: 20120516
  Transmission Date: 20120825
  Serious: Yes (Hospitalization, Disabling, Other)
  Sender: FDA-Public Use
  Company Number: US-ELI_LILLY_AND_COMPANY-US201203007408

PATIENT
  Sex: Female

DRUGS (21)
  1. FORTEO [Suspect]
     Dosage: 20 UG, QD
     Route: 065
  2. ESTRADIOL [Concomitant]
     Dosage: 1 MG, EACH MORNING
  3. IRON [Concomitant]
  4. TRIAMTERENE [Concomitant]
     Dosage: 37.5 MG, UNK
  5. PRAVASTATIN [Concomitant]
     Dosage: 40 MG, EACH EVENING
  6. CALCIUM [Concomitant]
  7. MEGESTROL ACETATE [Concomitant]
     Dosage: UNK, EACH MORNING
  8. HTZ [Concomitant]
     Dosage: 25 MG, BID
  9. CALCITONIN SALMON [Suspect]
     Dosage: UNK, QD
  10. METFORMIN HCL [Concomitant]
     Dosage: 500 MG, BID
  11. PROGESTERONE [Concomitant]
  12. VITAMINS NOS [Concomitant]
  13. FISH OIL [Concomitant]
  14. AMLODIPINE BESYLATE AND BENAZEPRIL HCL [Concomitant]
     Dosage: UNK, EACH MORNING
  15. FORTEO [Suspect]
     Indication: OSTEOPOROSIS
     Dosage: 20 UG, QD
     Route: 065
     Dates: start: 20111201
  16. FORTEO [Suspect]
     Dosage: 20 UG, QD
     Route: 065
  17. GABAPENTIN [Concomitant]
     Dosage: 200 MG, EACH EVENING
  18. LEVOTHYROXINE SODIUM [Concomitant]
     Dosage: 2 MG, EACH MORNING
  19. VENLAFAXINE [Concomitant]
     Dosage: 150 MG, BID
  20. CARVEDILOL [Concomitant]
     Dosage: 6.25 MG, QD
  21. APIDRA [Concomitant]

REACTIONS (12)
  - SPINAL CORD DISORDER [None]
  - DIABETES MELLITUS INADEQUATE CONTROL [None]
  - POSTURE ABNORMAL [None]
  - INTERVERTEBRAL DISC INJURY [None]
  - ARRHYTHMIA [None]
  - FATIGUE [None]
  - MOVEMENT DISORDER [None]
  - SPINAL COMPRESSION FRACTURE [None]
  - BLOOD GLUCOSE DECREASED [None]
  - NERVOUS SYSTEM DISORDER [None]
  - ABASIA [None]
  - MALAISE [None]
